FAERS Safety Report 4354567-2 (Version None)
Quarter: 2004Q2

REPORT INFORMATION
  Report Type: 
  Country: None (occurrence: None)
  Receive Date: 20040506
  Receipt Date: 20040506
  Transmission Date: 20050107
  Serious: Yes (Hospitalization)
  Sender: FDA-Public Use
  Company Number: None

PATIENT
  Sex: Female
  Weight: 70.7611 kg

DRUGS (15)
  1. IRINOTECAN PFIZER INC [Suspect]
     Indication: NON-SMALL CELL LUNG CANCER
     Dosage: 75MG/M2 DAY 1, 8 INTRAVENOUS
     Route: 042
     Dates: start: 20040415, end: 20040422
  2. OXALIPLATIN SANOFI-SYNTHELABO [Suspect]
     Indication: NON-SMALL CELL LUNG CANCER
     Dosage: 50MG/M2 DAY 1, 8 INTRAVENOUS
     Route: 042
     Dates: start: 20040415, end: 20040422
  3. ZOFRAN [Concomitant]
  4. DECADRON [Concomitant]
  5. ATIVAN [Concomitant]
  6. COMPAZINE [Concomitant]
  7. IMODIUM [Concomitant]
  8. KEFLEX [Concomitant]
  9. MAXZIDE [Concomitant]
  10. TRIAMTERENE [Concomitant]
  11. ALLEGRA [Concomitant]
  12. NIACIN [Concomitant]
  13. CALTRATE [Concomitant]
  14. COMBIVENT [Concomitant]
  15. MIACALCIN [Concomitant]

REACTIONS (10)
  - ABDOMINAL PAIN UPPER [None]
  - CONFUSIONAL STATE [None]
  - DEHYDRATION [None]
  - DIARRHOEA [None]
  - FAECAL INCONTINENCE [None]
  - FREQUENT BOWEL MOVEMENTS [None]
  - HYPOKALAEMIA [None]
  - NAUSEA [None]
  - RENAL FAILURE [None]
  - VOMITING [None]
